FAERS Safety Report 8481729 (Version 2)
Quarter: 2019Q2

REPORT INFORMATION
  Report Type: Spontaneous
  Country: DE (occurrence: DE)
  Receive Date: 20120329
  Receipt Date: 20190401
  Transmission Date: 20190711
  Serious: Yes (Other)
  Sender: FDA-Public Use
  Company Number: DE-MYLANLABS-2012S1005732

PATIENT
  Age: 80 Year
  Sex: Female

DRUGS (25)
  1. LISINOPRIL. [Concomitant]
     Active Substance: LISINOPRIL
     Indication: PRODUCT USED FOR UNKNOWN INDICATION
     Dosage: 10 MG,UNK
     Route: 048
     Dates: start: 20110811, end: 20110826
  2. SERTRALINE [Suspect]
     Active Substance: SERTRALINE HYDROCHLORIDE
     Dosage: 50 MG,UNK
     Route: 048
     Dates: start: 20110915, end: 20110919
  3. QUETIAPINE. [Suspect]
     Active Substance: QUETIAPINE
     Dosage: 175 MG,UNK
     Route: 048
     Dates: start: 20110902, end: 20110905
  4. HALOPERIDOL. [Suspect]
     Active Substance: HALOPERIDOL
     Indication: PRODUCT USED FOR UNKNOWN INDICATION
     Dosage: 1 MG,UNK
     Route: 048
     Dates: start: 20110913, end: 20110914
  5. DOMINAL                            /00002701/ [Suspect]
     Active Substance: ASPIRIN
     Indication: PRODUCT USED FOR UNKNOWN INDICATION
     Dosage: 80 MG,UNK
     Route: 048
     Dates: start: 20110826, end: 20110904
  6. QUETIAPINE. [Suspect]
     Active Substance: QUETIAPINE
     Dosage: 50 MG,UNK
     Route: 048
     Dates: start: 20110826, end: 20110829
  7. MACROGOL [Concomitant]
     Active Substance: POLYETHYLENE GLYCOLS
     Indication: PRODUCT USED FOR UNKNOWN INDICATION
     Dosage: 1 DF,UNK
  8. QUETIAPINE. [Suspect]
     Active Substance: QUETIAPINE
     Indication: PRODUCT USED FOR UNKNOWN INDICATION
     Dosage: 125 MG,UNK
     Route: 048
     Dates: start: 20110830, end: 20110901
  9. LITHIUM. [Suspect]
     Active Substance: LITHIUM
     Dosage: 450 MG,UNK
     Route: 048
     Dates: start: 20110725, end: 20110725
  10. AGOMELATIN [Suspect]
     Active Substance: AGOMELATINE
     Dosage: 50 MG,UNK
     Route: 048
     Dates: start: 20110818, end: 20110914
  11. LITHIUM. [Suspect]
     Active Substance: LITHIUM
     Dosage: 225 MG,UNK
     Route: 048
     Dates: start: 20110726, end: 20110811
  12. DOMINAL                            /00002701/ [Suspect]
     Active Substance: ASPIRIN
     Dosage: 120 MG,UNK
     Route: 048
     Dates: start: 20110905, end: 20110914
  13. DOMINAL                            /00002701/ [Suspect]
     Active Substance: ASPIRIN
     Dosage: 120 MG,UNK
     Route: 048
     Dates: start: 20110722, end: 20110825
  14. ALENDRONAT [Concomitant]
     Active Substance: ALENDRONATE SODIUM
     Indication: PRODUCT USED FOR UNKNOWN INDICATION
     Dosage: 70 MG,UNK
     Route: 048
  15. SERTRALINE [Suspect]
     Active Substance: SERTRALINE HYDROCHLORIDE
     Indication: PRODUCT USED FOR UNKNOWN INDICATION
     Dosage: 100 MG,UNK
     Route: 048
     Dates: start: 20110920, end: 20120101
  16. HALOPERIDOL. [Suspect]
     Active Substance: HALOPERIDOL
     Dosage: .5 MG,UNK
     Route: 048
     Dates: start: 20110906, end: 20110912
  17. QUETIAPINE. [Suspect]
     Active Substance: QUETIAPINE
     Dosage: 225 MG,UNK
     Route: 048
     Dates: start: 20110906, end: 20110911
  18. LITHIUM. [Suspect]
     Active Substance: LITHIUM
     Indication: PRODUCT USED FOR UNKNOWN INDICATION
     Dosage: 675 MG,UNK
     Route: 048
     Dates: start: 20110922
  19. LITHIUM. [Suspect]
     Active Substance: LITHIUM
     Dosage: 450 MG,UNK
     Route: 048
     Dates: start: 20110914, end: 20110921
  20. AGOMELATIN [Suspect]
     Active Substance: AGOMELATINE
     Indication: PRODUCT USED FOR UNKNOWN INDICATION
     Dosage: 25 MG,UNK
     Route: 048
     Dates: start: 20110811, end: 20110817
  21. QUETIAPINE. [Suspect]
     Active Substance: QUETIAPINE
     Dosage: 25 MG,UNK
     Route: 048
     Dates: start: 20110822, end: 20110825
  22. QUETIAPINE. [Suspect]
     Active Substance: QUETIAPINE
     Dosage: 250 MG,UNK
     Route: 048
     Dates: start: 20110912
  23. PHENPRO [Concomitant]
     Active Substance: PHENPROCOUMON
     Indication: PRODUCT USED FOR UNKNOWN INDICATION
     Dosage: 1.5 MG,UNK
     Route: 048
     Dates: start: 20110722, end: 20111012
  24. LISINOPRIL. [Concomitant]
     Active Substance: LISINOPRIL
     Dosage: 5 MG,UNK
     Route: 048
     Dates: start: 20110827, end: 20111012
  25. LISINOPRIL. [Concomitant]
     Active Substance: LISINOPRIL
     Dosage: 20 MG,UNK
     Route: 048
     Dates: start: 20110722, end: 20110810

REACTIONS (3)
  - Dysphagia [Recovered/Resolved]
  - Gait inability [Recovered/Resolved]
  - Salivary hypersecretion [Recovered/Resolved]

NARRATIVE: CASE EVENT DATE: 20110914
